FAERS Safety Report 12562628 (Version 3)
Quarter: 2016Q3

REPORT INFORMATION
  Report Type: Spontaneous
  Country: US (occurrence: US)
  Receive Date: 20160715
  Receipt Date: 20160805
  Transmission Date: 20161109
  Serious: Yes (Other)
  Sender: FDA-Public Use
  Company Number: US-AMGEN-USASP2016090916

PATIENT
  Age: 10 Year
  Sex: Female

DRUGS (2)
  1. ENBREL [Suspect]
     Active Substance: ETANERCEPT
     Dosage: UNK
     Route: 065
  2. ENBREL [Suspect]
     Active Substance: ETANERCEPT
     Indication: JUVENILE IDIOPATHIC ARTHRITIS
     Dosage: UNK UNK, QWK
     Route: 065
     Dates: start: 201604

REACTIONS (7)
  - Wound infection [Recovered/Resolved]
  - Drug dose omission [Unknown]
  - Scratch [Recovered/Resolved]
  - Skin exfoliation [Recovered/Resolved]
  - Injection site bruising [Recovered/Resolved]
  - Pain [Unknown]
  - Injection site extravasation [Unknown]

NARRATIVE: CASE EVENT DATE: 2016
